FAERS Safety Report 17712504 (Version 1)
Quarter: 2020Q2

REPORT INFORMATION
  Report Type: Spontaneous
  Country: US (occurrence: US)
  Receive Date: 20200425
  Receipt Date: 20200425
  Transmission Date: 20200714
  Serious: Yes (Other)
  Sender: FDA-Public Use
  Company Number: None

PATIENT
  Age: 33 Year
  Sex: Female
  Weight: 89.81 kg

DRUGS (2)
  1. PRASCO ETONOGESTREL/ETHINYL ESTRADIOL VAGINAL RING [Suspect]
     Active Substance: ETHINYL ESTRADIOL\ETONOGESTREL
     Indication: CONTRACEPTION
     Dates: start: 20200219, end: 20200424
  2. PRASCO ETONOGESTREL/ETHINYL ESTRADIOL VAGINAL RING [Suspect]
     Active Substance: ETHINYL ESTRADIOL\ETONOGESTREL
     Indication: DYSMENORRHOEA
     Dates: start: 20200219, end: 20200424

REACTIONS (21)
  - Pain [None]
  - Irritability [None]
  - Depression [None]
  - Dysmenorrhoea [None]
  - Emotional distress [None]
  - Breast pain [None]
  - Increased appetite [None]
  - Hypertension [None]
  - Product substitution issue [None]
  - Nausea [None]
  - Fungal infection [None]
  - Neurosis [None]
  - Headache [None]
  - Migraine [None]
  - Libido decreased [None]
  - Weight increased [None]
  - Device expulsion [None]
  - Abdominal pain [None]
  - Pruritus [None]
  - Inflammation [None]
  - Vaginal odour [None]

NARRATIVE: CASE EVENT DATE: 20200219
